FAERS Safety Report 13820959 (Version 1)
Quarter: 2017Q3

REPORT INFORMATION
  Report Type: Spontaneous
  Country: US (occurrence: US)
  Receive Date: 20170801
  Receipt Date: 20170801
  Transmission Date: 20171127
  Serious: No
  Sender: FDA-Public Use
  Company Number: US-GLENMARK PHARMACEUTICALS-2017GMK027220

PATIENT

DRUGS (6)
  1. ENALAPRIL [Concomitant]
     Active Substance: ENALAPRIL
     Indication: HYPERTENSION
     Dosage: UNK
     Route: 048
  2. MUPIROCIN. [Suspect]
     Active Substance: MUPIROCIN
     Indication: LOCALISED INFECTION
     Dosage: 1 APPLICATION TWICE A DAY
     Route: 061
     Dates: start: 20170419, end: 20170420
  3. ACTOS [Concomitant]
     Active Substance: PIOGLITAZONE HYDROCHLORIDE
     Indication: DIABETES MELLITUS
     Dosage: UNK
     Route: 048
  4. AMLODIPINE [Concomitant]
     Active Substance: AMLODIPINE BESYLATE
     Indication: HYPERTENSION
     Dosage: UNK
     Route: 048
  5. CIPROFLOXACIN. [Concomitant]
     Active Substance: CIPROFLOXACIN
     Indication: LOCALISED INFECTION
     Dosage: UNK
     Route: 048
  6. DOXYCYCLINE. [Concomitant]
     Active Substance: DOXYCYCLINE
     Indication: LOCALISED INFECTION
     Dosage: UNK
     Route: 048

REACTIONS (4)
  - Inappropriate schedule of drug administration [Unknown]
  - No adverse event [Unknown]
  - Wrong technique in product usage process [Recovered/Resolved]
  - Product use in unapproved indication [Unknown]

NARRATIVE: CASE EVENT DATE: 20170419
